FAERS Safety Report 5026818-2 (Version None)
Quarter: 2006Q2

REPORT INFORMATION
  Report Type: 
  Country: None (occurrence: None)
  Receive Date: 20060501
  Receipt Date: 20060203
  Transmission Date: 20061013
  Serious: No
  Sender: FDA-Public Use
  Company Number: 200610724BWH

PATIENT
  Age: 44 Year
  Sex: Female

DRUGS (3)
  1. NEXAVAR [Suspect]
     Indication: RENAL CELL CARCINOMA STAGE UNSPECIFIED
     Dosage: 400 MG, BID, ORAL
     Route: 048
     Dates: start: 20060131
  2. LISINOPRIL [Concomitant]
  3. VICODIN [Concomitant]

REACTIONS (6)
  - ANOREXIA [None]
  - BLISTER [None]
  - CHILLS [None]
  - DRY MOUTH [None]
  - PAIN IN EXTREMITY [None]
  - PALMAR-PLANTAR ERYTHRODYSAESTHESIA SYNDROME [None]
